FAERS Safety Report 16704178 (Version 2)
Quarter: 2019Q3

REPORT INFORMATION
  Report Type: Spontaneous
  Country: US (occurrence: US)
  Receive Date: 20190814
  Receipt Date: 20190826
  Transmission Date: 20191004
  Serious: No
  Sender: FDA-Public Use
  Company Number: US-ASTRAZENECA-2019SE45518

PATIENT
  Age: 86 Year
  Sex: Female
  Weight: 61.7 kg

DRUGS (6)
  1. CRESTAR [Concomitant]
     Indication: BLOOD CHOLESTEROL ABNORMAL
  2. TUMS [Concomitant]
     Active Substance: CALCIUM CARBONATE
     Indication: DYSPEPSIA
  3. NEXIUM 24HR [Suspect]
     Active Substance: ESOMEPRAZOLE MAGNESIUM
     Indication: GASTROOESOPHAGEAL REFLUX DISEASE
     Dosage: NEXIUM 24HR CLEARMINIS
     Route: 048
  4. NEXIUM 24HR [Suspect]
     Active Substance: ESOMEPRAZOLE MAGNESIUM
     Indication: GASTROOESOPHAGEAL REFLUX DISEASE
     Route: 048
  5. NEXIUM 24HR [Suspect]
     Active Substance: ESOMEPRAZOLE MAGNESIUM
     Indication: GASTROOESOPHAGEAL REFLUX DISEASE
     Route: 048
  6. CRESTAR [Concomitant]
     Indication: BLOOD POTASSIUM ABNORMAL

REACTIONS (2)
  - Fall [Recovered/Resolved]
  - Intentional product use issue [Unknown]
